FAERS Safety Report 25588961 (Version 3)
Quarter: 2025Q3

REPORT INFORMATION
  Report Type: Report from Study
  Country: US (occurrence: US)
  Receive Date: 20250722
  Receipt Date: 20250903
  Transmission Date: 20251021
  Serious: No
  Sender: SUNOVION
  Company Number: US-SUMITOMO PHARMA SWITZERLAND GMBH-2025SPA008607

PATIENT
  Age: 62 Year
  Sex: Male

DRUGS (13)
  1. ORGOVYX [Suspect]
     Active Substance: RELUGOLIX
     Indication: Prostate cancer
     Route: 048
     Dates: start: 20250610, end: 20250610
  2. ORGOVYX [Suspect]
     Active Substance: RELUGOLIX
     Route: 048
  3. ADVIL PM (DIPHENHYDRAMINE CITRATE\IBUPROFEN) [Concomitant]
     Active Substance: DIPHENHYDRAMINE CITRATE\IBUPROFEN
  4. ATORVASTATIN [Concomitant]
     Active Substance: ATORVASTATIN
  5. VITAMIN B COMPLEX [Concomitant]
     Active Substance: CYANOCOBALAMIN\DEXPANTHENOL\NIACINAMIDE\PYRIDOXINE HYDROCHLORIDE\RIBOFLAVIN 5^-PHOSPHATE SODIUM\THIA
  6. Q-10 co-enzyme [Concomitant]
  7. VITAMIN D3 [Concomitant]
     Active Substance: CHOLECALCIFEROL
  8. FAMOTIDINE [Concomitant]
     Active Substance: FAMOTIDINE
  9. MELATONIN [Concomitant]
     Active Substance: MELATONIN
  10. OMEGA-3-ACID ETHYL ESTER [Concomitant]
     Active Substance: OMEGA-3-ACID ETHYL ESTERS
  11. VITAMIN C [Concomitant]
     Active Substance: ASCORBIC ACID
  12. VITAMINS [Concomitant]
     Active Substance: VITAMINS
  13. SILDENAFIL [Concomitant]
     Active Substance: SILDENAFIL

REACTIONS (6)
  - Ejaculation failure [Unknown]
  - Sleep disorder [Unknown]
  - Hot flush [Unknown]
  - Myalgia [Unknown]
  - Libido decreased [Not Recovered/Not Resolved]
  - Gynaecomastia [Unknown]
